FAERS Safety Report 6733039-1 (Version None)
Quarter: 2010Q2

REPORT INFORMATION
  Report Type: 
  Country: None (occurrence: None)
  Receive Date: 20100517
  Receipt Date: 20100430
  Transmission Date: 20101027
  Serious: Yes (Other)
  Sender: FDA-Public Use
  Company Number: AUR-APL-2010-01231

PATIENT
  Age: 58 Year
  Sex: Female

DRUGS (1)
  1. MIRTAZAPINE [Suspect]
     Indication: DEPRESSION
     Dosage: ^IDF^ - DAILY - ORAL
     Route: 048

REACTIONS (3)
  - BASAL CELL CARCINOMA [None]
  - DISEASE RECURRENCE [None]
  - NO THERAPEUTIC RESPONSE [None]
